FAERS Safety Report 6813374-9 (Version None)
Quarter: 2010Q3

REPORT INFORMATION
  Report Type: 
  Country: None (occurrence: None)
  Receive Date: 20100701
  Receipt Date: 20100622
  Transmission Date: 20110219
  Serious: Yes (Other)
  Sender: FDA-Public Use
  Company Number: PHHY2010US40870

PATIENT

DRUGS (2)
  1. TRILEPTAL [Suspect]
     Dosage: 600/900
  2. GEODON [Suspect]

REACTIONS (4)
  - HYPOMANIA [None]
  - IMPULSIVE BEHAVIOUR [None]
  - MENSTRUATION IRREGULAR [None]
  - VISION BLURRED [None]
